FAERS Safety Report 5252479-3 (Version None)
Quarter: 2007Q1

REPORT INFORMATION
  Report Type: 
  Country: None (occurrence: None)
  Receive Date: 20070301
  Receipt Date: 20070112
  Transmission Date: 20070707
  Serious: Yes (Hospitalization, Other)
  Sender: FDA-Public Use
  Company Number: US-BRISTOL-MYERS SQUIBB COMPANY-13601877

PATIENT
  Age: 48 Year
  Sex: Female
  Weight: 83 kg

DRUGS (7)
  1. ERBITUX [Suspect]
     Indication: COLON CANCER
     Route: 042
     Dates: start: 20060905, end: 20060905
  2. NEXIUM [Concomitant]
  3. COUMADIN [Concomitant]
  4. VALTREX [Concomitant]
  5. POTASSIUM ACETATE [Concomitant]
  6. ALOXI [Concomitant]
  7. DECADRON [Concomitant]

REACTIONS (1)
  - HYPOMAGNESAEMIA [None]
